FAERS Safety Report 19199322 (Version 3)
Quarter: 2021Q2

REPORT INFORMATION
  Report Type: Spontaneous
  Country: CH (occurrence: CH)
  Receive Date: 20210430
  Receipt Date: 20210604
  Transmission Date: 20210717
  Serious: Yes (Other)
  Sender: FDA-Public Use
  Company Number: CH-SA-2021SA100741

PATIENT
  Age: 69 Year
  Sex: Male

DRUGS (10)
  1. PREDNISONE. [Concomitant]
     Active Substance: PREDNISONE
     Indication: CHRONIC RHINOSINUSITIS WITH NASAL POLYPS
     Dosage: UNK
     Route: 048
     Dates: start: 2019, end: 20201128
  2. DUPILUMAB [Suspect]
     Active Substance: DUPILUMAB
     Dosage: 300 MG, QOW
     Route: 058
     Dates: start: 20200902, end: 20201209
  3. MOMETASONE [Concomitant]
     Active Substance: MOMETASONE
     Indication: CHRONIC RHINOSINUSITIS WITH NASAL POLYPS
     Dosage: DOSE: 2 ? 0 ? 2
     Route: 045
     Dates: start: 2017
  4. DUPILUMAB [Suspect]
     Active Substance: DUPILUMAB
     Indication: CHRONIC RHINOSINUSITIS WITH NASAL POLYPS
     Dosage: 300 MG, QOW
     Route: 058
     Dates: start: 20200902
  5. DUPILUMAB [Suspect]
     Active Substance: DUPILUMAB
     Indication: ASTHMA
     Dosage: 300 MG, QOW
     Route: 058
     Dates: start: 20210208
  6. VENTOLIN [Concomitant]
     Active Substance: ALBUTEROL SULFATE
     Indication: ASTHMA
     Dosage: UNK, PRN
     Route: 048
     Dates: start: 2013
  7. SPIRIVA [Concomitant]
     Active Substance: TIOTROPIUM BROMIDE MONOHYDRATE
     Indication: ASTHMA
     Dosage: DOSE: 2 ? 0 ?0
     Route: 055
     Dates: start: 2019
  8. CALCIMAGON [CALCIUM] [Concomitant]
     Indication: OSTEOPOROSIS PROPHYLAXIS
     Dosage: UNK, QD (DOSE: 1 ? 0 ? 0)
     Route: 048
     Dates: start: 2015
  9. TAMSULOSIN [Concomitant]
     Active Substance: TAMSULOSIN
  10. FLUTIFORM [Concomitant]
     Active Substance: FLUTICASONE PROPIONATE\FORMOTEROL FUMARATE
     Indication: ASTHMA
     Dosage: 250/10 MG, DOSE: 2 ? 0 ? 2
     Route: 055
     Dates: start: 2017

REACTIONS (5)
  - Prostate cancer [Recovered/Resolved]
  - Pulmonary function test decreased [Recovered/Resolved]
  - Eosinophil count increased [Unknown]
  - Conjunctivitis allergic [Recovered/Resolved]
  - Asthma [Unknown]

NARRATIVE: CASE EVENT DATE: 202010
